FAERS Safety Report 25708812 (Version 2)
Quarter: 2025Q3

REPORT INFORMATION
  Report Type: Report from Study
  Country: US (occurrence: US)
  Receive Date: 20250821
  Receipt Date: 20250915
  Transmission Date: 20251021
  Serious: Yes (Hospitalization, Other)
  Sender: DECIPHERA PHARMACEUTICALS
  Company Number: US-DECIPHERA PHARMACEUTICALS LLC-2025US000993

PATIENT
  Age: 36 Year
  Sex: Male
  Weight: 120.38 kg

DRUGS (1)
  1. QINLOCK [Suspect]
     Active Substance: RIPRETINIB
     Indication: Gastrointestinal stromal tumour
     Dosage: 150 MILLIGRAM, QD
     Dates: start: 202505, end: 20250808

REACTIONS (2)
  - Haematemesis [Unknown]
  - Seizure [Unknown]

NARRATIVE: CASE EVENT DATE: 20250101
